FAERS Safety Report 7826634-X (Version None)
Quarter: 2011Q4

REPORT INFORMATION
  Report Type: 
  Country: None (occurrence: None)
  Receive Date: 20111020
  Receipt Date: 20100907
  Transmission Date: 20120403
  Serious: No
  Sender: FDA-Public Use
  Company Number: US-BAYER-201032896NA

PATIENT
  Sex: Female

DRUGS (4)
  1. HYDROCODONE BITARTRATE [Concomitant]
  2. CIPRO [Suspect]
     Indication: COLITIS
     Dosage: 500 MG, BID
     Route: 048
     Dates: start: 20100801, end: 20100801
  3. PREDNISONE [Concomitant]
  4. KLOR-CON [Concomitant]

REACTIONS (1)
  - TENDONITIS [None]
